FAERS Safety Report 19708609 (Version 1)
Quarter: 2021Q3

REPORT INFORMATION
  Report Type: Spontaneous
  Country: KR (occurrence: KR)
  Receive Date: 20210817
  Receipt Date: 20210817
  Transmission Date: 20211014
  Serious: Yes (Hospitalization)
  Sender: FDA-Public Use
  Company Number: KR-SA-2021SA264827

PATIENT
  Age: 71 Year
  Sex: Male

DRUGS (1)
  1. APIDRA SOLOSTAR [Suspect]
     Active Substance: INSULIN GLULISINE
     Indication: DIABETES MELLITUS MANAGEMENT
     Dosage: UNK
     Route: 058

REACTIONS (2)
  - Arthralgia [Unknown]
  - Product storage error [Unknown]

NARRATIVE: CASE EVENT DATE: 2021
